FAERS Safety Report 7956780-1 (Version None)
Quarter: 2011Q4

REPORT INFORMATION
  Report Type: 
  Country: None (occurrence: None)
  Receive Date: 20111205
  Receipt Date: 20111129
  Transmission Date: 20120403
  Serious: Yes (Hospitalization)
  Sender: FDA-Public Use
  Company Number: US-GILEAD-2011-0046937

PATIENT
  Sex: Female

DRUGS (2)
  1. LETAIRIS [Suspect]
     Indication: PULMONARY HYPERTENSION
     Dosage: 5 MG, UNK
     Route: 048
     Dates: start: 20101001
  2. LETAIRIS [Suspect]
     Indication: SARCOIDOSIS

REACTIONS (6)
  - BACK PAIN [None]
  - VOMITING [None]
  - DEHYDRATION [None]
  - ABDOMINAL PAIN UPPER [None]
  - NAUSEA [None]
  - DIARRHOEA [None]
